FAERS Safety Report 23845386 (Version 2)
Quarter: 2024Q3

REPORT INFORMATION
  Report Type: Other
  Country: US (occurrence: US)
  Receive Date: 20240511
  Receipt Date: 20240815
  Transmission Date: 20241017
  Serious: No
  Sender: TRAVERE THERAPEUTICS
  Company Number: US-TRAVERE-2024TVT00356

PATIENT
  Sex: Female

DRUGS (2)
  1. FILSPARI [Suspect]
     Active Substance: SPARSENTAN
     Indication: Chronic kidney disease
     Route: 048
     Dates: start: 20240409
  2. FILSPARI [Suspect]
     Active Substance: SPARSENTAN

REACTIONS (3)
  - Arthralgia [Unknown]
  - Joint swelling [Unknown]
  - Product use in unapproved indication [Unknown]
